FAERS Safety Report 8811919 (Version 1)
Quarter: 2012Q4

REPORT INFORMATION
  Report Type: Spontaneous
  Country: BE (occurrence: None)
  Receive Date: 20120924
  Receipt Date: 20120924
  Transmission Date: 20130627
  Serious: Yes (Death, Hospitalization)
  Sender: FDA-Public Use
  Company Number: 2012PL000160

PATIENT
  Age: 71 Year
  Sex: Male

DRUGS (10)
  1. AZATHIOPRINE [Suspect]
     Indication: CROHN^S DISEASE
  2. OMEPRAZOLE [Concomitant]
  3. DIPYRIDAMOLE [Concomitant]
  4. LISINOPRIL [Concomitant]
  5. MOLSIDOMINE [Concomitant]
  6. ACETYLSALICYLIC ACID [Concomitant]
  7. FENOFIBRATE [Concomitant]
  8. CELIPROLOL [Concomitant]
  9. CETIRIZINE [Concomitant]
  10. NISOLDIPINE [Concomitant]

REACTIONS (8)
  - Acute myeloid leukaemia [None]
  - Asthenia [None]
  - Ear infection [None]
  - Staphylococcal sepsis [None]
  - Diarrhoea [None]
  - Mucosal inflammation [None]
  - Febrile neutropenia [None]
  - Clostridium difficile infection [None]
